FAERS Safety Report 14956533 (Version 3)
Quarter: 2018Q2

REPORT INFORMATION
  Report Type: Spontaneous
  Country: FR (occurrence: FR)
  Receive Date: 20180531
  Receipt Date: 20180615
  Transmission Date: 20180711
  Serious: Yes (Other)
  Sender: FDA-Public Use
  Company Number: FR-ASTELLAS-2018US021598

PATIENT
  Age: 48 Year
  Sex: Female

DRUGS (7)
  1. PROGRAF [Interacting]
     Active Substance: TACROLIMUS\TACROLIMUS ANHYDROUS
     Indication: TRANSPLANT REJECTION
  2. PROGRAF [Suspect]
     Active Substance: TACROLIMUS\TACROLIMUS ANHYDROUS
     Indication: RENAL TRANSPLANT
     Dosage: 1.5 MG (1 MG AND 0.5 MG), TWICE DAILY
     Route: 048
     Dates: start: 2001
  3. DOLIPRANE [Concomitant]
     Active Substance: ACETAMINOPHEN
     Indication: PRODUCT USED FOR UNKNOWN INDICATION
     Dosage: UNK UNK, UNKNOWN FREQ.
     Route: 065
  4. PROGRAF [Interacting]
     Active Substance: TACROLIMUS\TACROLIMUS ANHYDROUS
     Indication: RENAL TRANSPLANT
     Dosage: 1.5 MG (1 MG AND 0.5 MG), TWICE DAILY
     Route: 048
     Dates: start: 2001
  5. PROGRAF [Interacting]
     Active Substance: TACROLIMUS\TACROLIMUS ANHYDROUS
     Indication: TRANSPLANT REJECTION
     Route: 065
  6. EUPRESSYL                          /00631801/ [Concomitant]
     Active Substance: URAPIDIL
     Indication: PRODUCT USED FOR UNKNOWN INDICATION
     Route: 065
  7. BISOPROLOL [Concomitant]
     Active Substance: BISOPROLOL
     Indication: PRODUCT USED FOR UNKNOWN INDICATION
     Route: 065

REACTIONS (14)
  - Immunosuppressant drug level decreased [Unknown]
  - Epstein-Barr viraemia [Recovering/Resolving]
  - Headache [Recovering/Resolving]
  - Body temperature increased [Unknown]
  - Blood pressure increased [Recovering/Resolving]
  - Hot flush [Unknown]
  - Retinitis pigmentosa [Recovering/Resolving]
  - Cataract [Recovering/Resolving]
  - Anxiety [Not Recovered/Not Resolved]
  - Polymenorrhoea [Unknown]
  - Immunosuppressant drug level increased [Recovering/Resolving]
  - Drug interaction [Unknown]
  - Epstein-Barr viraemia [Recovering/Resolving]
  - Endometriosis [Unknown]

NARRATIVE: CASE EVENT DATE: 2001
